FAERS Safety Report 4933651-6 (Version None)
Quarter: 2006Q1

REPORT INFORMATION
  Report Type: 
  Country: None (occurrence: None)
  Receive Date: 20060306
  Receipt Date: 20060222
  Transmission Date: 20060701
  Serious: Yes (Other)
  Sender: FDA-Public Use
  Company Number: GB-BRISTOL-MYERS SQUIBB COMPANY-13291281

PATIENT
  Age: 20 Year
  Sex: Male

DRUGS (5)
  1. ABILIFY [Suspect]
     Indication: PSYCHOTIC DISORDER
     Route: 048
     Dates: start: 20060203, end: 20060206
  2. RISPERIDONE [Concomitant]
     Route: 048
     Dates: start: 20051201, end: 20060131
  3. ZOPICLONE [Concomitant]
     Indication: INSOMNIA
     Route: 048
     Dates: start: 20060125
  4. LORAZEPAM [Concomitant]
     Indication: AGITATION
     Route: 048
     Dates: start: 20051219
  5. HALOPERIDOL [Concomitant]
     Indication: AGITATION
     Dosage: DOSAGE: 1.5-3MG
     Route: 048
     Dates: start: 20051219

REACTIONS (6)
  - ABNORMAL BEHAVIOUR [None]
  - AGGRESSION [None]
  - AGITATION [None]
  - GRANDIOSITY [None]
  - HOSTILITY [None]
  - PARANOIA [None]
